FAERS Safety Report 23673116 (Version 1)
Quarter: 2024Q1

REPORT INFORMATION
  Report Type: Spontaneous
  Country: US (occurrence: None)
  Receive Date: 20240325
  Receipt Date: 20240325
  Transmission Date: 20240410
  Serious: Yes (Death)
  Sender: FDA-Public Use
  Company Number: None

PATIENT
  Age: 77 Year
  Sex: Male

DRUGS (1)
  1. OFEV [Suspect]
     Active Substance: NINTEDANIB
     Indication: Interstitial lung disease
     Dosage: FREQUENCY : TWICE A DAY;?
     Route: 048
     Dates: start: 20220407, end: 20240324

REACTIONS (5)
  - Pneumonia [None]
  - Respiratory failure [None]
  - Cor pulmonale acute [None]
  - Shock [None]
  - Right ventricular failure [None]

NARRATIVE: CASE EVENT DATE: 20240324
